FAERS Safety Report 23140270 (Version 3)
Quarter: 2024Q1

REPORT INFORMATION
  Report Type: Spontaneous
  Country: CZ (occurrence: CZ)
  Receive Date: 20231102
  Receipt Date: 20240226
  Transmission Date: 20240410
  Serious: Yes (Other)
  Sender: FDA-Public Use
  Company Number: None

PATIENT
  Age: 35 Year
  Sex: Female

DRUGS (11)
  1. ATEZOLIZUMAB [Suspect]
     Active Substance: ATEZOLIZUMAB
     Indication: Neoplasm malignant
     Dosage: UNK
     Route: 065
     Dates: start: 202109
  2. ATEZOLIZUMAB [Suspect]
     Active Substance: ATEZOLIZUMAB
     Indication: Triple negative breast cancer
  3. CISPLATIN [Suspect]
     Active Substance: CISPLATIN
     Indication: Neoplasm malignant
     Dosage: UNK
     Route: 065
  4. CAPECITABINE [Suspect]
     Active Substance: CAPECITABINE
     Indication: Triple negative breast cancer
     Dosage: UNK, 6 CYCLES
     Route: 065
     Dates: start: 202008, end: 202101
  5. GEMCITABINE [Suspect]
     Active Substance: GEMCITABINE
     Indication: Neoplasm malignant
     Dosage: UNK
     Route: 065
  6. PACLITAXEL [Suspect]
     Active Substance: PACLITAXEL
     Indication: Neoplasm malignant
     Dosage: UNK
     Route: 065
     Dates: start: 202109
  7. PACLITAXEL [Suspect]
     Active Substance: PACLITAXEL
     Indication: Triple negative breast cancer
  8. TAXOL [Suspect]
     Active Substance: PACLITAXEL
     Indication: Triple negative breast cancer
     Dosage: UNK
     Route: 065
     Dates: start: 202109
  9. ZOLEDRONIC ACID [Suspect]
     Active Substance: ZOLEDRONIC ACID
     Indication: Neoplasm malignant
     Dosage: UNK
     Route: 065
  10. CLARITHROMYCIN [Concomitant]
     Active Substance: CLARITHROMYCIN
     Indication: Product used for unknown indication
     Dosage: UNK
     Route: 065
  11. SACITUZUMAB GOVITECAN [Concomitant]
     Active Substance: SACITUZUMAB GOVITECAN
     Indication: Triple negative breast cancer
     Dosage: 10 MG/KG, ON DAYS 1 AND 8 OF A 21-DAY CYCLE
     Route: 065
     Dates: start: 202208

REACTIONS (3)
  - Metastases to bone [Unknown]
  - Disease progression [Unknown]
  - Disease recurrence [Unknown]

NARRATIVE: CASE EVENT DATE: 20220201
